FAERS Safety Report 14306657 (Version 2)
Quarter: 2017Q4

REPORT INFORMATION
  Report Type: Spontaneous
  Country: US (occurrence: US)
  Receive Date: 20171220
  Receipt Date: 20171230
  Transmission Date: 20180321
  Serious: No
  Sender: FDA-Public Use
  Company Number: US-BIOGEN-2017BI00496083

PATIENT
  Sex: Female

DRUGS (1)
  1. AVONEX [Suspect]
     Active Substance: INTERFERON BETA-1A
     Indication: MULTIPLE SCLEROSIS
     Route: 065
     Dates: start: 19980101, end: 19981007

REACTIONS (6)
  - Infection [Unknown]
  - Dysphonia [Unknown]
  - Nasopharyngitis [Unknown]
  - Productive cough [Unknown]
  - Pharyngitis [Unknown]
  - Influenza [Unknown]
